FAERS Safety Report 21843219 (Version 1)
Quarter: 2023Q1

REPORT INFORMATION
  Report Type: Spontaneous
  Country: FR (occurrence: FR)
  Receive Date: 20230110
  Receipt Date: 20230110
  Transmission Date: 20230418
  Serious: Yes (Other)
  Sender: FDA-Public Use
  Company Number: None

PATIENT
  Age: 72 Year
  Sex: Male

DRUGS (4)
  1. DOXYCYCLINE [Suspect]
     Active Substance: DOXYCYCLINE
     Indication: Sepsis
     Dosage: 100 MILLIGRAM, BID
     Route: 048
     Dates: start: 20220614
  2. MEROPENEM [Suspect]
     Active Substance: MEROPENEM
     Indication: Sepsis
     Dosage: 2 GRAM, Q8H
     Route: 042
     Dates: start: 20220505
  3. LEVOFLOXACIN [Concomitant]
     Active Substance: LEVOFLOXACIN
     Indication: Sepsis
     Dosage: UNK
     Route: 065
     Dates: start: 20220225, end: 20220601
  4. DAPTOMYCIN [Concomitant]
     Active Substance: DAPTOMYCIN
     Indication: Sepsis
     Dosage: UNK
     Route: 065
     Dates: start: 20220223, end: 20220526

REACTIONS (2)
  - Cholestasis [Not Recovered/Not Resolved]
  - Condition aggravated [Not Recovered/Not Resolved]
